FAERS Safety Report 6339202-6 (Version None)
Quarter: 2009Q3

REPORT INFORMATION
  Report Type: 
  Country: None (occurrence: None)
  Receive Date: 20090903
  Receipt Date: 20090826
  Transmission Date: 20100115
  Serious: Yes (Hospitalization)
  Sender: FDA-Public Use
  Company Number: JP-AVENTIS-200912404JP

PATIENT
  Age: 77 Year
  Sex: Male

DRUGS (2)
  1. FUROSEMIDE [Suspect]
  2. FLUCONAZOLE [Suspect]
     Indication: CANDIDA SEPSIS

REACTIONS (4)
  - HYPOKALAEMIA [None]
  - TORSADE DE POINTES [None]
  - VENTRICULAR FIBRILLATION [None]
  - VENTRICULAR TACHYCARDIA [None]
